FAERS Safety Report 6650330-8 (Version None)
Quarter: 2010Q1

REPORT INFORMATION
  Report Type: 
  Country: None (occurrence: None)
  Receive Date: 20100325
  Receipt Date: 20100318
  Transmission Date: 20100710
  Serious: Yes (Disabling)
  Sender: FDA-Public Use
  Company Number: PHHY2010RO16454

PATIENT
  Sex: Male

DRUGS (4)
  1. ZOMETA [Suspect]
     Indication: METASTASES TO BONE
     Dosage: 4 MG, QMO
     Route: 042
  2. XELODA [Concomitant]
  3. AVASTIN [Concomitant]
  4. LETROZOLE [Concomitant]

REACTIONS (3)
  - JOINT CREPITATION [None]
  - OSTEOLYSIS [None]
  - OSTEONECROSIS [None]
